FAERS Safety Report 19217474 (Version 1)
Quarter: 2021Q2

REPORT INFORMATION
  Report Type: Spontaneous
  Country: US (occurrence: US)
  Receive Date: 20210505
  Receipt Date: 20210505
  Transmission Date: 20210717
  Serious: Yes (Life-Threatening, Hospitalization)
  Sender: FDA-Public Use
  Company Number: None

PATIENT
  Age: 64 Year
  Sex: Female
  Weight: 65.32 kg

DRUGS (14)
  1. METFORMIN [Concomitant]
     Active Substance: METFORMIN HYDROCHLORIDE
  2. GLIMEPIRIDE. [Concomitant]
     Active Substance: GLIMEPIRIDE
  3. NP THYROID [Concomitant]
     Active Substance: LEVOTHYROXINE\LIOTHYRONINE
  4. VIT B5 [Concomitant]
  5. GRAPE SEED EXTRACT [Concomitant]
     Active Substance: DIETARY SUPPLEMENT\GRAPE SEED EXTRACT
  6. VITAMIN D3 [Concomitant]
     Active Substance: CHOLECALCIFEROL
  7. VITAMIN B12 [Concomitant]
     Active Substance: CYANOCOBALAMIN
  8. RYBELSUS [Suspect]
     Active Substance: SEMAGLUTIDE
     Indication: DIABETES MELLITUS
     Dates: start: 20210114, end: 20210328
  9. HEMIFUMARA [Concomitant]
  10. SPIRONOLACTONE. [Concomitant]
     Active Substance: SPIRONOLACTONE
  11. RYBELSUS [Suspect]
     Active Substance: SEMAGLUTIDE
     Dosage: ?          QUANTITY:7 MG MILLIGRAM(S);?
  12. ALISKIREN [Concomitant]
     Active Substance: ALISKIREN
  13. LECETHIN [Concomitant]
  14. VITAMIN B6 [Concomitant]
     Active Substance: PYRIDOXINE HYDROCHLORIDE

REACTIONS (22)
  - Constipation [None]
  - Malaise [None]
  - Headache [None]
  - Nausea [None]
  - Asthenia [None]
  - Abdominal pain [None]
  - Depression [None]
  - Chest discomfort [None]
  - Dyspnoea [None]
  - Hiccups [None]
  - Blood glucose increased [None]
  - Abnormal dreams [None]
  - Back pain [None]
  - Arthralgia [None]
  - Blood pressure increased [None]
  - Night sweats [None]
  - Anxiety [None]
  - Feeling cold [None]
  - Nervousness [None]
  - Vomiting [None]
  - Vision blurred [None]
  - Heart rate increased [None]

NARRATIVE: CASE EVENT DATE: 20210211
